FAERS Safety Report 10217626 (Version 1)
Quarter: 2014Q2

REPORT INFORMATION
  Report Type: Report from Study
  Country: VE (occurrence: VE)
  Receive Date: 20140604
  Receipt Date: 20140604
  Transmission Date: 20141212
  Serious: Yes (Hospitalization, Other)
  Sender: FDA-Public Use
  Company Number: PHHY2014VE068401

PATIENT
  Age: 43 Year
  Sex: Male

DRUGS (1)
  1. LEPONEX [Suspect]
     Indication: SCHIZOPHRENIA
     Dosage: 200 MG, DAILY
     Route: 048
     Dates: start: 2010

REACTIONS (3)
  - Aggression [Not Recovered/Not Resolved]
  - Schizophrenia [Unknown]
  - Diabetes mellitus [Recovering/Resolving]
